FAERS Safety Report 9371434 (Version 1)
Quarter: 2013Q2

REPORT INFORMATION
  Report Type: Spontaneous
  Country: TR (occurrence: TR)
  Receive Date: 20130627
  Receipt Date: 20130627
  Transmission Date: 20140414
  Serious: Yes (Hospitalization)
  Sender: FDA-Public Use
  Company Number: TR-SANOFI-AVENTIS-2013SA060440

PATIENT
  Age: 67 Year
  Sex: Male

DRUGS (8)
  1. DESMOPRESSIN ACETATE [Suspect]
     Indication: PRODUCT USED FOR UNKNOWN INDICATION
     Route: 065
  2. CITALOPRAM [Interacting]
     Indication: DEPRESSION
     Route: 065
     Dates: start: 2004
  3. CITALOPRAM [Interacting]
     Indication: DEPRESSION
     Route: 065
     Dates: start: 2008
  4. CITALOPRAM [Interacting]
     Indication: DEPRESSION
     Route: 065
     Dates: start: 2012
  5. CARBAMAZEPINE [Suspect]
     Indication: MANIA
     Route: 065
  6. CARBAMAZEPINE [Suspect]
     Indication: MOOD ALTERED
     Route: 065
  7. PRIMIDONE [Suspect]
     Indication: PRODUCT USED FOR UNKNOWN INDICATION
     Route: 065
  8. INTERFERON [Concomitant]
     Indication: HEPATITIS C VIRUS TEST POSITIVE

REACTIONS (7)
  - Hyponatraemia [Recovering/Resolving]
  - Mania [Recovering/Resolving]
  - Logorrhoea [Recovering/Resolving]
  - Insomnia [Recovering/Resolving]
  - Libido increased [Recovering/Resolving]
  - Self esteem inflated [Recovering/Resolving]
  - Labelled drug-drug interaction medication error [Unknown]
